FAERS Safety Report 6715573-3 (Version None)
Quarter: 2010Q2

REPORT INFORMATION
  Report Type: 
  Country: None (occurrence: None)
  Receive Date: 20100507
  Receipt Date: 20100427
  Transmission Date: 20101027
  Serious: Yes (Hospitalization, Other)
  Sender: FDA-Public Use
  Company Number: PHHY2010AU01533

PATIENT
  Sex: Male

DRUGS (1)
  1. CLOZARIL [Suspect]
     Dosage: 150 MG, UNK
     Route: 048
     Dates: start: 20080224, end: 20100422

REACTIONS (5)
  - CONTUSION [None]
  - FALL [None]
  - HAEMATOMA [None]
  - LOWER RESPIRATORY TRACT INFECTION [None]
  - PARKINSON'S DISEASE [None]
